FAERS Safety Report 4897754-7 (Version None)
Quarter: 2006Q1

REPORT INFORMATION
  Report Type: 
  Country: None (occurrence: None)
  Receive Date: 20060130
  Receipt Date: 20060130
  Transmission Date: 20060701
  Serious: Yes (Other)
  Sender: FDA-Public Use
  Company Number: None

PATIENT
  Age: 84 Year
  Sex: Male
  Weight: 95.2554 kg

DRUGS (1)
  1. DEPODUR [Suspect]
     Indication: EPIDURAL ANAESTHESIA
     Dosage: 15 MG ONE TIME EPIDURAL
     Route: 008
     Dates: start: 20060124, end: 20060124

REACTIONS (6)
  - HYPERSOMNIA [None]
  - NAUSEA [None]
  - OXYGEN SATURATION DECREASED [None]
  - POST PROCEDURAL COMPLICATION [None]
  - PRURITUS [None]
  - RESPIRATORY RATE DECREASED [None]
